FAERS Safety Report 16254921 (Version 1)
Quarter: 2019Q2

REPORT INFORMATION
  Report Type: Spontaneous
  Country: US (occurrence: US)
  Receive Date: 20190430
  Receipt Date: 20190430
  Transmission Date: 20190711
  Serious: Yes (Hospitalization)
  Sender: FDA-Public Use
  Company Number: US-STRIDES ARCOLAB LIMITED-2019SP003525

PATIENT
  Age: 29 Year
  Sex: Female

DRUGS (1)
  1. IBUPROFEN. [Suspect]
     Active Substance: IBUPROFEN
     Indication: PRODUCT USED FOR UNKNOWN INDICATION
     Dosage: 60,000 MG IN TOTAL (300 TABLETS)
     Route: 048

REACTIONS (13)
  - Liver injury [Recovered/Resolved]
  - Diarrhoea haemorrhagic [Recovered/Resolved]
  - Jaundice [Recovered/Resolved]
  - Hypotension [Recovered/Resolved]
  - Toxicity to various agents [Recovered/Resolved]
  - Suicide attempt [Unknown]
  - Mental status changes [Recovered/Resolved]
  - Hepatomegaly [Recovered/Resolved]
  - Lethargy [Recovered/Resolved]
  - Confusional state [Recovered/Resolved]
  - Hepatitis [Recovered/Resolved]
  - Diarrhoea [Recovered/Resolved]
  - Overdose [Recovered/Resolved]
